FAERS Safety Report 17468076 (Version 1)
Quarter: 2020Q1

REPORT INFORMATION
  Report Type: Spontaneous
  Country: LB (occurrence: LB)
  Receive Date: 20200227
  Receipt Date: 20200227
  Transmission Date: 20200409
  Serious: Yes (Death, Hospitalization, Other)
  Sender: FDA-Public Use
  Company Number: LB-SA-2020SA048927

PATIENT
  Age: 71 Year
  Sex: Female

DRUGS (5)
  1. RIFAMPICIN [Suspect]
     Active Substance: RIFAMPIN
     Indication: MYCOBACTERIUM TUBERCULOSIS COMPLEX TEST POSITIVE
     Dosage: 600 MG, QD
  2. ETHAMBUTOL [Suspect]
     Active Substance: ETHAMBUTOL HYDROCHLORIDE
     Indication: MYCOBACTERIUM TUBERCULOSIS COMPLEX TEST POSITIVE
     Dosage: 400 MG, Q8H
  3. ISONIAZID. [Suspect]
     Active Substance: ISONIAZID
     Indication: MYCOBACTERIUM TUBERCULOSIS COMPLEX TEST POSITIVE
     Dosage: 300 MG, QD
  4. BCG FOR IMMUNOTHERAPY [Suspect]
     Active Substance: BACILLUS CALMETTE-GUERIN ANTIGEN, UNSPECIFIED SUBSTRAIN
     Indication: BLADDER CANCER
     Route: 065
  5. METHYLPREDNISOLONE. [Suspect]
     Active Substance: METHYLPREDNISOLONE
     Indication: MYCOBACTERIUM TUBERCULOSIS COMPLEX TEST POSITIVE
     Dosage: 40 MG, Q8H

REACTIONS (10)
  - Disseminated Bacillus Calmette-Guerin infection [Unknown]
  - Hypotension [Unknown]
  - Hepatic enzyme increased [Unknown]
  - Mycobacterium tuberculosis complex test positive [Unknown]
  - Acute kidney injury [Unknown]
  - Aplastic anaemia [Unknown]
  - Pyrexia [Unknown]
  - Haemophagocytic lymphohistiocytosis [Fatal]
  - Cardiac arrest [Fatal]
  - Depressed level of consciousness [Unknown]
